FAERS Safety Report 5728159-4 (Version None)
Quarter: 2008Q2

REPORT INFORMATION
  Report Type: 
  Country: None (occurrence: None)
  Receive Date: 20080430
  Receipt Date: 20080425
  Transmission Date: 20081010
  Serious: Yes (Other)
  Sender: FDA-Public Use
  Company Number: US-GDP-08403880

PATIENT
  Age: 58 Year
  Sex: Female

DRUGS (4)
  1. PLIAGLIS (LIDOCAINE) (TETRACAINE) CREAM 7%/7% [Suspect]
     Indication: LOCAL ANAESTHESIA
     Dosage: (1 DF TOPICAL)
     Route: 061
     Dates: start: 20080409, end: 20080409
  2. PAVASTATIN [Concomitant]
  3. ALLEGRA [Concomitant]
  4. VALACYCLOVIR [Concomitant]

REACTIONS (9)
  - ANXIETY [None]
  - BLOOD PRESSURE INCREASED [None]
  - EYE PAIN [None]
  - FOREIGN BODY IN EYE [None]
  - HEADACHE [None]
  - NAUSEA [None]
  - ORAL PAIN [None]
  - PAIN [None]
  - RHINALGIA [None]
